FAERS Safety Report 12634544 (Version 4)
Quarter: 2017Q1

REPORT INFORMATION
  Report Type: Spontaneous
  Country: GR (occurrence: GR)
  Receive Date: 20160809
  Receipt Date: 20170315
  Transmission Date: 20170428
  Serious: Yes (Death, Other)
  Sender: FDA-Public Use
  Company Number: GR-CELGENEUS-GRC-2015062410

PATIENT

DRUGS (3)
  1. REVLIMID [Suspect]
     Active Substance: LENALIDOMIDE
     Indication: PLASMA CELL MYELOMA
     Dosage: 25 MILLIGRAM
     Route: 048
  2. CARFILZOMIB [Concomitant]
     Active Substance: CARFILZOMIB
     Indication: PLASMA CELL MYELOMA
     Dosage: (20 MG/M2 DAYS 1 AND 2 OF CYCLE 1];?27 MG/M2 THERE AFTER)
     Route: 041
  3. DEXAMETHASONE. [Concomitant]
     Active Substance: DEXAMETHASONE
     Indication: PLASMA CELL MYELOMA
     Dosage: 40 MILLIGRAM
     Route: 065

REACTIONS (23)
  - Hypokalaemia [Unknown]
  - Plasma cell myeloma recurrent [Unknown]
  - Hyperglycaemia [Unknown]
  - Hypertension [Unknown]
  - Cardiac failure [Unknown]
  - Respiratory tract infection [Unknown]
  - Asthenia [Unknown]
  - Neutropenia [Unknown]
  - Febrile neutropenia [Unknown]
  - Fatigue [Unknown]
  - Dyspnoea [Unknown]
  - Hypophosphataemia [Unknown]
  - Pneumonia [Unknown]
  - Anaemia [Unknown]
  - Myocardial ischaemia [Unknown]
  - Acute kidney injury [Unknown]
  - Leukopenia [Unknown]
  - Pulmonary embolism [Unknown]
  - Thrombocytopenia [Unknown]
  - Death [Fatal]
  - Rash [Unknown]
  - Neuropathy peripheral [Unknown]
  - Plasma cell myeloma [Unknown]
